FAERS Safety Report 8157144-0 (Version None)
Quarter: 2012Q1

REPORT INFORMATION
  Report Type: 
  Country: None (occurrence: None)
  Receive Date: 20120222
  Receipt Date: 20120214
  Transmission Date: 20120608
  Serious: Yes (Hospitalization)
  Sender: FDA-Public Use
  Company Number: US-BAYER-2011-078640

PATIENT
  Age: 31 Year
  Sex: Female
  Weight: 70.6 kg

DRUGS (9)
  1. AZITHROMYCIN [Concomitant]
     Dosage: 250 MG, UNK
     Route: 048
     Dates: start: 20090617
  2. MAXALT [Concomitant]
     Dosage: 10 MG, UNK
     Route: 048
     Dates: start: 20090907
  3. LORAZEPAM [Concomitant]
     Dosage: 1 MG, UNK
     Route: 048
     Dates: start: 20090902
  4. ATENOLOL [Concomitant]
     Dosage: UNK
     Route: 048
     Dates: start: 20090907
  5. YAZ [Suspect]
  6. M.V.I. [Concomitant]
     Dosage: UNK
     Route: 048
     Dates: start: 20090907
  7. CHERATUSSIN AC [Concomitant]
     Dosage: UNK
     Route: 048
     Dates: start: 20090617
  8. HYDROCODONE [Concomitant]
     Dosage: UNK
     Route: 048
     Dates: start: 20090713, end: 20090813
  9. ALBUTEROL [Concomitant]
     Dosage: UNK
     Dates: start: 20090907

REACTIONS (5)
  - INJURY [None]
  - PAIN [None]
  - PULMONARY EMBOLISM [None]
  - GENERAL PHYSICAL HEALTH DETERIORATION [None]
  - EMOTIONAL DISTRESS [None]
